FAERS Safety Report 19081998 (Version 3)
Quarter: 2021Q2

REPORT INFORMATION
  Report Type: Spontaneous
  Country: JP (occurrence: JP)
  Receive Date: 20210401
  Receipt Date: 20210429
  Transmission Date: 20210717
  Serious: Yes (Hospitalization)
  Sender: FDA-Public Use
  Company Number: JP-AMGEN-JPNSP2021048460

PATIENT
  Age: 84 Year
  Sex: Female
  Weight: 33 kg

DRUGS (10)
  1. CELECOX [Concomitant]
     Active Substance: CELECOXIB
     Dosage: 100 MG, BID
     Route: 048
     Dates: start: 20210329
  2. OPALMON [Concomitant]
     Active Substance: LIMAPROST
     Dosage: 5 UG, TID
     Route: 048
     Dates: start: 20210329
  3. PRALIA [Suspect]
     Active Substance: DENOSUMAB
     Indication: OSTEOPOROSIS
     Dosage: 60 MG, ONCE EVERY 6 MO
     Route: 058
     Dates: start: 20180605
  4. EDIROL [Suspect]
     Active Substance: ELDECALCITOL
     Indication: PRODUCT USED FOR UNKNOWN INDICATION
     Dosage: 0.75 UG, QD
     Route: 048
     Dates: start: 20180608, end: 20210323
  5. DENOTAS [Suspect]
     Active Substance: CALCIUM CARBONATE\CHOLECALCIFEROL\MAGNESIUM CARBONATE
     Indication: HYPOCALCAEMIA
     Dosage: 2DF/DAY, QD
     Route: 065
     Dates: start: 20210305, end: 20210323
  6. EDIROL [Suspect]
     Active Substance: ELDECALCITOL
     Dosage: 0.75 UG, QD
     Route: 048
     Dates: start: 20210329
  7. MUCOSTA [Concomitant]
     Active Substance: REBAMIPIDE
     Dosage: 100 MG, BID
     Route: 048
     Dates: start: 20161111, end: 20210322
  8. CELECOX [Concomitant]
     Active Substance: CELECOXIB
     Dosage: 100 MG, BID
     Route: 048
     Dates: start: 20161111, end: 20210323
  9. MUCOSTA [Concomitant]
     Active Substance: REBAMIPIDE
     Dosage: 100 MG, BID
     Route: 048
     Dates: start: 20210329
  10. OPALMON [Concomitant]
     Active Substance: LIMAPROST
     Dosage: 5 UG, TID
     Route: 048
     Dates: start: 20190607, end: 20210323

REACTIONS (2)
  - Hypercalcaemia [Recovered/Resolved]
  - Hypocalcaemia [Not Recovered/Not Resolved]

NARRATIVE: CASE EVENT DATE: 20210305
